FAERS Safety Report 4934251-4 (Version None)
Quarter: 2006Q1

REPORT INFORMATION
  Report Type: 
  Country: None (occurrence: None)
  Receive Date: 20060303
  Receipt Date: 20060221
  Transmission Date: 20060701
  Serious: Yes (Hospitalization)
  Sender: FDA-Public Use
  Company Number: 2006027944

PATIENT
  Age: 76 Year
  Sex: Female
  Weight: 34 kg

DRUGS (4)
  1. LIPITOR [Suspect]
     Indication: HYPERLIPIDAEMIA
     Dosage: ORAL
     Route: 048
     Dates: start: 19970101, end: 20040406
  2. SULPIRIDE [Concomitant]
  3. DOMPERIDONE [Concomitant]
  4. FLUVOXAMINE MALEATE [Concomitant]

REACTIONS (12)
  - ANXIETY DISORDER [None]
  - BRAIN STEM INFARCTION [None]
  - CEREBRAL INFARCTION [None]
  - DELIRIUM [None]
  - ENDOMETRIOSIS [None]
  - HYPOCALCAEMIA [None]
  - HYPOKALAEMIA [None]
  - HYPOMAGNESAEMIA [None]
  - HYPOPHOSPHATAEMIA [None]
  - ORAL INTAKE REDUCED [None]
  - PYREXIA [None]
  - RHABDOMYOLYSIS [None]
